FAERS Safety Report 17959262 (Version 1)
Quarter: 2020Q2

REPORT INFORMATION
  Report Type: Spontaneous
  Country: US (occurrence: US)
  Receive Date: 20200629
  Receipt Date: 20200629
  Transmission Date: 20200714
  Serious: Yes (Other)
  Sender: FDA-Public Use
  Company Number: US-SANOFI-AVENTIS-2011SA017922

PATIENT

DRUGS (2)
  1. ALLEGRA ALLERGY [Suspect]
     Active Substance: FEXOFENADINE HYDROCHLORIDE
     Indication: HYPERSENSITIVITY
     Dosage: 180 MG
     Route: 048
     Dates: start: 20110321
  2. ALLEGRA ALLERGY [Suspect]
     Active Substance: FEXOFENADINE HYDROCHLORIDE
     Dosage: 180 MG
     Route: 048
     Dates: start: 20110321

REACTIONS (3)
  - Product complaint [Recovered/Resolved]
  - Dysphagia [Unknown]
  - Choking [Recovered/Resolved]

NARRATIVE: CASE EVENT DATE: 20110321
